FAERS Safety Report 12649667 (Version 5)
Quarter: 2016Q4

REPORT INFORMATION
  Report Type: Spontaneous
  Country: IT (occurrence: IT)
  Receive Date: 20160812
  Receipt Date: 20161229
  Transmission Date: 20170207
  Serious: Yes (Hospitalization)
  Sender: FDA-Public Use
  Company Number: IT-FRI-1000086792

PATIENT
  Age: 65 Year
  Sex: Male
  Weight: 75 kg

DRUGS (14)
  1. CRESTOR [Suspect]
     Active Substance: ROSUVASTATIN CALCIUM
     Indication: HYPERCHOLESTEROLAEMIA
     Dosage: 10 MG, QD
     Route: 048
     Dates: start: 20150101, end: 20160802
  2. MUSCORIL [Concomitant]
     Active Substance: THIOCOLCHICOSIDE
     Indication: MUSCLE TIGHTNESS
  3. PAROXETINE. [Concomitant]
     Active Substance: PAROXETINE
     Indication: DEPRESSION
     Dosage: 20 MG, QD
     Route: 048
     Dates: start: 2001, end: 20160713
  4. SEREUPIN [Suspect]
     Active Substance: PAROXETINE HYDROCHLORIDE
     Indication: DEPRESSION
     Dosage: UNK
     Route: 048
     Dates: start: 2015
  5. STILIDEN [Concomitant]
     Active Substance: PAROXETINE HYDROCHLORIDE
     Indication: DEPRESSION
     Dosage: 40 GTT, QD
     Route: 048
     Dates: start: 20160715, end: 20160718
  6. STILIDEN [Concomitant]
     Active Substance: PAROXETINE HYDROCHLORIDE
     Dosage: 30 GTT, QD
     Route: 048
     Dates: start: 20160727, end: 20160802
  7. ESOPRAL [Concomitant]
     Active Substance: ESOMEPRAZOLE MAGNESIUM
     Indication: OESOPHAGITIS
     Dosage: 20 MG, UNK
  8. ESCITALOPRAM OXALATE - BP [Suspect]
     Active Substance: ESCITALOPRAM OXALATE
     Dosage: 5 GTT, QD
     Route: 048
     Dates: start: 20160719, end: 20160727
  9. GLUCOPHAGE [Suspect]
     Active Substance: METFORMIN HYDROCHLORIDE
     Indication: TYPE 2 DIABETES MELLITUS
     Dosage: 500 MG, BID
     Route: 048
     Dates: start: 2011
  10. DIAMOX SEQUELS [Concomitant]
     Active Substance: ACETAZOLAMIDE
     Indication: EAR DISORDER
     Dosage: 1 DF, QD
     Route: 048
     Dates: start: 20160715, end: 20160725
  11. EUTIMIL [Suspect]
     Active Substance: PAROXETINE HYDROCHLORIDE
     Indication: DEPRESSION
     Dosage: 20 MG, UNK
     Route: 048
  12. STILIDEN [Concomitant]
     Active Substance: PAROXETINE HYDROCHLORIDE
     Dosage: 35 GTT, QD
     Route: 048
     Dates: start: 20160719, end: 20160726
  13. ESCITALOPRAM OXALATE - BP [Suspect]
     Active Substance: ESCITALOPRAM OXALATE
     Indication: DEPRESSION
     Dosage: 4 GTT, QD
     Route: 048
     Dates: start: 20160715, end: 20160718
  14. MUSCORIL [Concomitant]
     Active Substance: THIOCOLCHICOSIDE
     Indication: TINNITUS
     Dosage: 1 DF, BID
     Route: 048
     Dates: start: 20160714, end: 20160802

REACTIONS (4)
  - Immune thrombocytopenic purpura [Recovered/Resolved with Sequelae]
  - Gingival bleeding [Recovered/Resolved with Sequelae]
  - Petechiae [Recovered/Resolved with Sequelae]
  - Tinnitus [Not Recovered/Not Resolved]

NARRATIVE: CASE EVENT DATE: 20160727
